FAERS Safety Report 5798924-6 (Version None)
Quarter: 2008Q3

REPORT INFORMATION
  Report Type: 
  Country: None (occurrence: None)
  Receive Date: 20080702
  Receipt Date: 20080619
  Transmission Date: 20090109
  Serious: Yes (Other)
  Sender: FDA-Public Use
  Company Number: JP-GENENTECH-263679

PATIENT

DRUGS (7)
  1. MABTHERA [Suspect]
     Indication: LYMPHOMA
     Dosage: 375 MG/KG, Q3W
     Route: 065
     Dates: start: 20030701, end: 20060630
  2. METHOTREXATE [Suspect]
     Indication: LYMPHOMA
     Dosage: 1 G/M2, Q3W
     Dates: start: 20030701, end: 20060630
  3. PIRARUBICIN [Suspect]
     Indication: LYMPHOMA
     Dosage: 25 MG/M2, Q3W
     Route: 042
     Dates: start: 20030701, end: 20060630
  4. PROCARBAZINE [Suspect]
     Indication: LYMPHOMA
     Dosage: 100 MG/M2, Q3W
     Dates: start: 20030701, end: 20060630
  5. PREDNISOLONE [Suspect]
     Indication: LYMPHOMA
     Dosage: 1 MG/KG, Q3W
     Dates: start: 20030701, end: 20060630
  6. WHOLE BRAIN RADIATION [Suspect]
     Indication: LYMPHOMA
     Dosage: 20 GY, UNK
  7. LEUCOVORIN CALCIUM [Concomitant]
     Indication: DRUG USE FOR UNKNOWN INDICATION
     Dates: start: 20030701, end: 20060630

REACTIONS (1)
  - STOMATITIS [None]
